FAERS Safety Report 6522376-1 (Version None)
Quarter: 2009Q4

REPORT INFORMATION
  Report Type: 
  Country: None (occurrence: None)
  Receive Date: 20091229
  Receipt Date: 20091229
  Transmission Date: 20100525
  Serious: Yes (Other)
  Sender: FDA-Public Use
  Company Number: None

PATIENT
  Sex: Female
  Weight: 54.4316 kg

DRUGS (1)
  1. BIAXIN [Suspect]
     Indication: SINUSITIS
     Dosage: 500MG TWICE DAILY/10 DAY PO
     Route: 048
     Dates: start: 20091207, end: 20091209

REACTIONS (3)
  - ERYTHEMA [None]
  - FEELING HOT [None]
  - HEART RATE IRREGULAR [None]
